FAERS Safety Report 5944526-8 (Version None)
Quarter: 2008Q4

REPORT INFORMATION
  Report Type: 
  Country: None (occurrence: None)
  Receive Date: 20081104
  Receipt Date: 20081027
  Transmission Date: 20090506
  Serious: Yes (Hospitalization)
  Sender: FDA-Public Use
  Company Number: 2008SP021842

PATIENT
  Age: 69 Year
  Sex: Male

DRUGS (6)
  1. INTEGRILIN [Suspect]
     Indication: DRUG USE FOR UNKNOWN INDICATION
     Dosage: 1 DF; ONCE; IV
     Route: 042
     Dates: start: 20080602, end: 20080602
  2. ASPIRIN [Concomitant]
  3. LIPITOR [Concomitant]
  4. INDAPAMIDE [Concomitant]
  5. TRITACE [Concomitant]
  6. ZYLOPRIM [Concomitant]

REACTIONS (3)
  - CHILLS [None]
  - PYREXIA [None]
  - THROMBOCYTOPENIA [None]
